FAERS Safety Report 13168606 (Version 1)
Quarter: 2017Q1

REPORT INFORMATION
  Report Type: Spontaneous
  Country: AU (occurrence: AU)
  Receive Date: 20170131
  Receipt Date: 20170131
  Transmission Date: 20170428
  Serious: Yes (Other)
  Sender: FDA-Public Use
  Company Number: AU-ABBVIE-17P-008-1856281-00

PATIENT
  Age: 23 Year
  Sex: Male

DRUGS (1)
  1. EPILIM EC [Suspect]
     Active Substance: VALPROATE SODIUM
     Indication: GENERALISED TONIC-CLONIC SEIZURE
     Route: 048
     Dates: start: 2016, end: 20161116

REACTIONS (6)
  - Depression [Unknown]
  - Feeling abnormal [Unknown]
  - Tooth disorder [Unknown]
  - Suicidal ideation [Unknown]
  - Alopecia [Unknown]
  - Acne [Unknown]
